FAERS Safety Report 13121082 (Version 1)
Quarter: 2017Q1

REPORT INFORMATION
  Report Type: Other
  Country: US (occurrence: US)
  Receive Date: 20170117
  Receipt Date: 20170117
  Transmission Date: 20170428
  Serious: Yes (Death)
  Sender: FDA-Public Use
  Company Number: US-OSMOTICA_PHARMACEUTICAL_US_LLC-POI0573201700007

PATIENT
  Age: 42 Year
  Sex: Female

DRUGS (6)
  1. ACETAMINOPHEN. [Suspect]
     Active Substance: ACETAMINOPHEN
     Dates: end: 2015
  2. BISOPROLOL [Suspect]
     Active Substance: BISOPROLOL
     Dates: end: 2015
  3. HYDROCHLOROTHIAZIDE WITH TRIAMTERENE [Suspect]
     Active Substance: HYDROCHLOROTHIAZIDE\TRIAMTERENE
     Dates: end: 2015
  4. TRAZODONE [Suspect]
     Active Substance: TRAZODONE HYDROCHLORIDE
     Dates: end: 2015
  5. ALCOHOL. [Suspect]
     Active Substance: ALCOHOL
     Dates: end: 2015
  6. NIFEDIPINE EXTENDED-RELEASE TABLETS [Suspect]
     Active Substance: NIFEDIPINE
     Dates: end: 2015

REACTIONS (1)
  - Completed suicide [Fatal]

NARRATIVE: CASE EVENT DATE: 2015
